FAERS Safety Report 6075875-3 (Version None)
Quarter: 2009Q1

REPORT INFORMATION
  Report Type: 
  Country: None (occurrence: None)
  Receive Date: 20090210
  Receipt Date: 20090128
  Transmission Date: 20090719
  Serious: Yes (Disabling)
  Sender: FDA-Public Use
  Company Number: 2008-00743FE

PATIENT
  Age: 17 Year
  Sex: Female

DRUGS (3)
  1. DDAVP [Suspect]
     Indication: DIABETES INSIPIDUS
     Dosage: 1000 MCG/1400 MCG, PO
     Route: 048
     Dates: start: 19980101
  2. LEVOTHYROXINE SODIUM [Concomitant]
  3. HYDROCORTISONE [Concomitant]

REACTIONS (3)
  - DEPRESSION [None]
  - INTENTIONAL SELF-INJURY [None]
  - RESTLESSNESS [None]
